FAERS Safety Report 17913056 (Version 1)
Quarter: 2020Q2

REPORT INFORMATION
  Report Type: Spontaneous
  Country: US (occurrence: US)
  Receive Date: 20200618
  Receipt Date: 20200618
  Transmission Date: 20200714
  Serious: No
  Sender: FDA-Public Use
  Company Number: US-METUCHEN-STN-2020-0119

PATIENT
  Age: 76 Year
  Sex: Male
  Weight: 93.07 kg

DRUGS (1)
  1. STENDRA [Suspect]
     Active Substance: AVANAFIL
     Indication: ERECTILE DYSFUNCTION
     Dosage: 200MG
     Route: 048

REACTIONS (2)
  - Frustration tolerance decreased [Unknown]
  - Drug ineffective [Unknown]
